FAERS Safety Report 13234332 (Version 1)
Quarter: 2017Q1

REPORT INFORMATION
  Report Type: Spontaneous
  Country: US (occurrence: US)
  Receive Date: 20170215
  Receipt Date: 20170215
  Transmission Date: 20170428
  Serious: Yes (Hospitalization)
  Sender: FDA-Public Use
  Company Number: None

PATIENT
  Sex: Female

DRUGS (1)
  1. ZOFRAN [Suspect]
     Active Substance: ONDANSETRON HYDROCHLORIDE

REACTIONS (6)
  - Documented hypersensitivity to administered product [None]
  - Dyspnoea [None]
  - Chest pain [None]
  - Crying [None]
  - Vulvovaginal pain [None]
  - Nausea [None]

NARRATIVE: CASE EVENT DATE: 20160518
